FAERS Safety Report 9700840 (Version 3)
Quarter: 2014Q1

REPORT INFORMATION
  Report Type: Spontaneous
  Country: FR (occurrence: None)
  Receive Date: 20131119
  Receipt Date: 20140110
  Transmission Date: 20141002
  Serious: Yes (Hospitalization)
  Sender: FDA-Public Use
  Company Number: FR-20130433

PATIENT
  Age: 65 Year
  Sex: Male

DRUGS (1)
  1. HEXABRIX [Suspect]
     Indication: SPINAL MYELOGRAM
     Route: 037
     Dates: start: 20131012, end: 20131012

REACTIONS (5)
  - Myoclonus [None]
  - Epilepsy [None]
  - Confusional state [None]
  - Encephalopathy [None]
  - Incorrect route of drug administration [None]
